FAERS Safety Report 4677462-8 (Version None)
Quarter: 2005Q2

REPORT INFORMATION
  Report Type: 
  Country: None (occurrence: None)
  Receive Date: 20050531
  Receipt Date: 20050518
  Transmission Date: 20051028
  Serious: Yes (Other)
  Sender: FDA-Public Use
  Company Number: 200514588GDDC

PATIENT
  Age: 68 Year
  Sex: Female

DRUGS (3)
  1. LEFLUNOMIDE [Suspect]
     Indication: RHEUMATOID ARTHRITIS
     Route: 048
     Dates: start: 20020501, end: 20020901
  2. METHOTREXATE [Concomitant]
     Indication: RHEUMATOID ARTHRITIS
     Dosage: DOSE: UNK
  3. GOLD [Concomitant]
     Dosage: DOSE: UNK
     Route: 030

REACTIONS (8)
  - CONDITION AGGRAVATED [None]
  - IMPAIRED HEALING [None]
  - PAIN [None]
  - RASH MACULAR [None]
  - RHEUMATOID ARTHRITIS [None]
  - SCAB [None]
  - SKIN ULCER [None]
  - TRANSPLANT REJECTION [None]
